FAERS Safety Report 4721261-5 (Version None)
Quarter: 2005Q3

REPORT INFORMATION
  Report Type: 
  Country: None (occurrence: None)
  Receive Date: 20050720
  Receipt Date: 20050706
  Transmission Date: 20060218
  Serious: Yes (Congenital Anomaly)
  Sender: FDA-Public Use
  Company Number: 2005FR-00116

PATIENT

DRUGS (1)
  1. RANITIDINE [Suspect]
     Dosage: 300 MG, TRANSPLACE
     Route: 064

REACTIONS (4)
  - COARCTATION OF THE AORTA [None]
  - CONGENITAL ANOMALY [None]
  - DRUG EXPOSURE DURING PREGNANCY [None]
  - VENTRICULAR SEPTAL DEFECT [None]
